FAERS Safety Report 8291282-7 (Version None)
Quarter: 2012Q2

REPORT INFORMATION
  Report Type: 
  Country: None (occurrence: None)
  Receive Date: 20120417
  Receipt Date: 20120406
  Transmission Date: 20120825
  Serious: Yes (Hospitalization)
  Sender: FDA-Public Use
  Company Number: FR-BRISTOL-MYERS SQUIBB COMPANY-16513947

PATIENT
  Age: 66 Year
  Sex: Male

DRUGS (3)
  1. IRBESARTAN + HYDROCHLOROTHIAZIDE [Suspect]
     Indication: HYPERTENSION
     Route: 048
     Dates: start: 20070101
  2. IMURAN [Suspect]
     Indication: RENAL TRANSPLANT
     Route: 048
     Dates: start: 20111001
  3. CELLCEPT [Suspect]
     Indication: RENAL TRANSPLANT
     Route: 048
     Dates: start: 20070101, end: 20111001

REACTIONS (5)
  - PERIPHERAL SENSORY NEUROPATHY [None]
  - MYALGIA [None]
  - RESPIRATORY FAILURE [None]
  - PLEURAL EFFUSION [None]
  - MUSCULAR WEAKNESS [None]
